FAERS Safety Report 6245005-3 (Version None)
Quarter: 2009Q2

REPORT INFORMATION
  Report Type: 
  Country: None (occurrence: None)
  Receive Date: 20090619
  Receipt Date: 20090303
  Transmission Date: 20091009
  Serious: No
  Sender: FDA-Public Use
  Company Number: ALL1-2009-00568

PATIENT
  Age: 36 Year
  Sex: Female

DRUGS (1)
  1. VYVANSE [Suspect]
     Dosage: 20 MG, ORAL
     Route: 048
     Dates: end: 20090201

REACTIONS (4)
  - DISTURBANCE IN ATTENTION [None]
  - DRUG PRESCRIBING ERROR [None]
  - INCORRECT DOSE ADMINISTERED [None]
  - PANIC ATTACK [None]
